FAERS Safety Report 11608739 (Version 6)
Quarter: 2017Q1

REPORT INFORMATION
  Report Type: Spontaneous
  Country: US (occurrence: US)
  Receive Date: 20151007
  Receipt Date: 20170124
  Transmission Date: 20170428
  Serious: No
  Sender: FDA-Public Use
  Company Number: US-ACTELION PHARMACEUTICALS US, INC.-A-NJ2015-125101

PATIENT
  Age: 79 Year
  Sex: Female

DRUGS (3)
  1. TRACLEER [Suspect]
     Active Substance: BOSENTAN
     Indication: PULMONARY HYPERTENSION
     Dosage: 125 MG, BID
     Route: 048
     Dates: start: 20151001
  2. SILDENAFIL. [Suspect]
     Active Substance: SILDENAFIL
     Indication: PRODUCT USED FOR UNKNOWN INDICATION
     Route: 065
  3. WARFARIN [Concomitant]
     Active Substance: WARFARIN

REACTIONS (8)
  - Hot flush [Unknown]
  - Nasal congestion [Unknown]
  - Sinus congestion [Unknown]
  - Extra dose administered [Unknown]
  - Miliaria [Unknown]
  - Ocular icterus [Unknown]
  - Dementia Alzheimer^s type [Unknown]
  - Dry mouth [Unknown]

NARRATIVE: CASE EVENT DATE: 20170119
